FAERS Safety Report 10488700 (Version 1)
Quarter: 2014Q4

REPORT INFORMATION
  Report Type: Spontaneous
  Country: US (occurrence: US)
  Receive Date: 20141002
  Receipt Date: 20141002
  Transmission Date: 20150528
  Serious: Yes (Hospitalization, Other)
  Sender: FDA-Public Use
  Company Number: US-AMGEN-USASP2014074703

PATIENT
  Age: 42 Year
  Sex: Male

DRUGS (2)
  1. ENBREL [Suspect]
     Active Substance: ETANERCEPT
     Indication: RHEUMATOID ARTHRITIS
     Dosage: 50 MG, QWK
     Route: 065
     Dates: start: 1998
  2. ENBREL [Suspect]
     Active Substance: ETANERCEPT
     Indication: OSTEOARTHRITIS

REACTIONS (14)
  - Arthroscopy [Recovered/Resolved]
  - Arthralgia [Not Recovered/Not Resolved]
  - Depression [Not Recovered/Not Resolved]
  - Swelling [Not Recovered/Not Resolved]
  - Chondrolysis [Not Recovered/Not Resolved]
  - Condition aggravated [Not Recovered/Not Resolved]
  - Joint stiffness [Not Recovered/Not Resolved]
  - Musculoskeletal pain [Recovered/Resolved]
  - Joint range of motion decreased [Recovered/Resolved]
  - Arthropathy [Not Recovered/Not Resolved]
  - Drug resistance [Not Recovered/Not Resolved]
  - Pain [Not Recovered/Not Resolved]
  - Ill-defined disorder [Unknown]
  - Arthritis [Not Recovered/Not Resolved]

NARRATIVE: CASE EVENT DATE: 201406
